FAERS Safety Report 20724356 (Version 10)
Quarter: 2024Q1

REPORT INFORMATION
  Report Type: Spontaneous
  Country: CA (occurrence: CA)
  Receive Date: 20220419
  Receipt Date: 20240321
  Transmission Date: 20240410
  Serious: Yes (Other)
  Sender: FDA-Public Use
  Company Number: CA-PFIZER INC-202200511198

PATIENT
  Age: 63 Year
  Sex: Male
  Weight: 80 kg

DRUGS (3)
  1. INLYTA [Suspect]
     Active Substance: AXITINIB
     Indication: Renal cancer
     Dosage: UNK
     Dates: start: 20220303
  2. INLYTA [Suspect]
     Active Substance: AXITINIB
     Dosage: 5 MG, TWO TIMES A DAY (BID FOR 30 DAYS)
     Route: 048
  3. KEYTRUDA [Concomitant]
     Active Substance: PEMBROLIZUMAB
     Dosage: UNK

REACTIONS (4)
  - Spinal operation [Unknown]
  - Asthenia [Unknown]
  - Weight decreased [Unknown]
  - Renal disorder [Unknown]
